FAERS Safety Report 14310109 (Version 1)
Quarter: 2017Q4

REPORT INFORMATION
  Report Type: Spontaneous
  Country: US (occurrence: US)
  Receive Date: 20171220
  Receipt Date: 20171220
  Transmission Date: 20180321
  Serious: No
  Sender: FDA-Public Use
  Company Number: US-BAYER-2017-240381

PATIENT
  Sex: Male
  Weight: 73 kg

DRUGS (5)
  1. SPIRONOLACTONE. [Concomitant]
     Active Substance: SPIRONOLACTONE
  2. WARFARIN [Concomitant]
     Active Substance: WARFARIN
  3. MIRALAX [Suspect]
     Active Substance: POLYETHYLENE GLYCOL 3350
     Route: 048
  4. FLOMAX [MORNIFLUMATE] [Concomitant]
     Dosage: UNK
  5. LASIX [Concomitant]
     Active Substance: FUROSEMIDE

REACTIONS (7)
  - Abdominal discomfort [Not Recovered/Not Resolved]
  - Abdominal pain upper [Not Recovered/Not Resolved]
  - Gastrointestinal pain [Not Recovered/Not Resolved]
  - Product use issue [Unknown]
  - Wrong technique in product usage process [Unknown]
  - Dyschezia [Not Recovered/Not Resolved]
  - Flatulence [Not Recovered/Not Resolved]
